FAERS Safety Report 8016293-8 (Version None)
Quarter: 2011Q4

REPORT INFORMATION
  Report Type: 
  Country: None (occurrence: None)
  Receive Date: 20111230
  Receipt Date: 20111220
  Transmission Date: 20120403
  Serious: Yes (Life-Threatening)
  Sender: FDA-Public Use
  Company Number: US-MERCK-1112USA02772

PATIENT
  Age: 34 Year
  Sex: Female

DRUGS (1)
  1. SINGULAIR [Suspect]
     Indication: ANTIINFLAMMATORY THERAPY
     Route: 048
     Dates: start: 20111201, end: 20111201

REACTIONS (3)
  - OFF LABEL USE [None]
  - SUICIDAL IDEATION [None]
  - HEAD DISCOMFORT [None]
